FAERS Safety Report 5979340-0 (Version None)
Quarter: 2008Q4

REPORT INFORMATION
  Report Type: 
  Country: None (occurrence: None)
  Receive Date: 20081204
  Receipt Date: 20081125
  Transmission Date: 20090506
  Serious: No
  Sender: FDA-Public Use
  Company Number: US-EISAI MEDICAL RESEARCH-E2020-03713-CLI-US

PATIENT
  Sex: Female
  Weight: 48 kg

DRUGS (1)
  1. E2020/PLACEBO [Suspect]
     Indication: DISTURBANCE IN ATTENTION
     Dosage: DOOUBLE BLIND
     Route: 048
     Dates: start: 20080916, end: 20081002

REACTIONS (1)
  - NEUTROPENIA [None]
